FAERS Safety Report 8500543-5 (Version None)
Quarter: 2012Q3

REPORT INFORMATION
  Report Type: 
  Country: None (occurrence: None)
  Receive Date: 20120703
  Receipt Date: 20120703
  Transmission Date: 20120928
  Serious: Yes (Other)
  Sender: FDA-Public Use
  Company Number: None

PATIENT
  Sex: Female
  Weight: 56.7 kg

DRUGS (1)
  1. STELARA [Suspect]
     Indication: PSORIATIC ARTHROPATHY
     Dosage: 45 MG AT WEEKS 0 AND 4 THEN SUBCUTANEOUS
     Route: 058
     Dates: start: 20120601, end: 20120610

REACTIONS (2)
  - HEADACHE [None]
  - EYE PAIN [None]
